FAERS Safety Report 8777392 (Version 5)
Quarter: 2013Q1

REPORT INFORMATION
  Report Type: Spontaneous
  Country: US (occurrence: US)
  Receive Date: 20120911
  Receipt Date: 20130208
  Transmission Date: 20140127
  Serious: Yes (Death, Hospitalization, Other)
  Sender: FDA-Public Use
  Company Number: US-BRISTOL-MYERS SQUIBB COMPANY-16923005

PATIENT
  Age: 59 Year
  Sex: Female

DRUGS (1)
  1. YERVOY [Suspect]
     Indication: MALIGNANT MELANOMA
     Dosage: EXP:6/30/2014?FORMULATION: YERVOY 50MG/10ML, YERVOY 200MG/40ML?LAST DOSE:19JUL12?INJN SOLN, VIAL
     Route: 042
     Dates: start: 20120628

REACTIONS (6)
  - Malignant neoplasm progression [Fatal]
  - Oesophageal candidiasis [Unknown]
  - Gastritis [Unknown]
  - Diarrhoea [Unknown]
  - Urinary tract infection [Unknown]
  - Decubitus ulcer [Unknown]
